FAERS Safety Report 25800157 (Version 1)
Quarter: 2025Q3

REPORT INFORMATION
  Report Type: Spontaneous
  Country: US (occurrence: US)
  Receive Date: 20250915
  Receipt Date: 20250915
  Transmission Date: 20251021
  Serious: Yes (Hospitalization, Other)
  Sender: BAXTER
  Company Number: US-BAXTER-2025BAX020807

PATIENT
  Age: 63 Year
  Sex: Male

DRUGS (17)
  1. CEFTRIAXONE [Suspect]
     Active Substance: CEFTRIAXONE
     Indication: Pain in extremity
     Route: 065
     Dates: start: 202210
  2. CEFTRIAXONE [Suspect]
     Active Substance: CEFTRIAXONE
     Indication: Erythema
  3. CEFTRIAXONE [Suspect]
     Active Substance: CEFTRIAXONE
     Indication: Oedema
  4. CEFTRIAXONE [Suspect]
     Active Substance: CEFTRIAXONE
     Indication: Tenderness
  5. ZOSYN [Suspect]
     Active Substance: PIPERACILLIN SODIUM\TAZOBACTAM SODIUM
     Indication: Pain in extremity
     Route: 065
     Dates: start: 20221011
  6. ZOSYN [Suspect]
     Active Substance: PIPERACILLIN SODIUM\TAZOBACTAM SODIUM
     Indication: Erythema
  7. ZOSYN [Suspect]
     Active Substance: PIPERACILLIN SODIUM\TAZOBACTAM SODIUM
     Indication: Oedema
  8. ZOSYN [Suspect]
     Active Substance: PIPERACILLIN SODIUM\TAZOBACTAM SODIUM
     Indication: Tenderness
  9. VANCOMYCIN [Suspect]
     Active Substance: VANCOMYCIN
     Indication: Pain in extremity
     Route: 065
     Dates: start: 202210
  10. VANCOMYCIN [Suspect]
     Active Substance: VANCOMYCIN
     Indication: Erythema
  11. VANCOMYCIN [Suspect]
     Active Substance: VANCOMYCIN
     Indication: Oedema
  12. VANCOMYCIN [Suspect]
     Active Substance: VANCOMYCIN
     Indication: Tenderness
  13. AUGMENTIN [Suspect]
     Active Substance: AMOXICILLIN\CLAVULANATE POTASSIUM
     Indication: Pain in extremity
     Route: 065
  14. AUGMENTIN [Suspect]
     Active Substance: AMOXICILLIN\CLAVULANATE POTASSIUM
     Indication: Erythema
  15. AUGMENTIN [Suspect]
     Active Substance: AMOXICILLIN\CLAVULANATE POTASSIUM
     Indication: Oedema
  16. AUGMENTIN [Suspect]
     Active Substance: AMOXICILLIN\CLAVULANATE POTASSIUM
     Indication: Tenderness
  17. PENICILLIN [Concomitant]
     Active Substance: PENICILLIN
     Indication: Prophylaxis
     Route: 048
     Dates: end: 202311

REACTIONS (12)
  - Malignant melanoma [Unknown]
  - Skin lesion [Recovering/Resolving]
  - Mycobacterium abscessus infection [Unknown]
  - Suture related complication [Unknown]
  - Papule [Unknown]
  - Condition aggravated [Recovered/Resolved]
  - Erythema [Recovered/Resolved]
  - Granulomatous dermatitis [Unknown]
  - Swelling [Recovered/Resolved]
  - Infection [Unknown]
  - Leukocytosis [Unknown]
  - Erythema [Recovered/Resolved]

NARRATIVE: CASE EVENT DATE: 20221010
